FAERS Safety Report 9506464 (Version 2)
Quarter: 2013Q3

REPORT INFORMATION
  Report Type: Report from Study
  Country: MX (occurrence: MX)
  Receive Date: 20130906
  Receipt Date: 20130906
  Transmission Date: 20140515
  Serious: Yes (Hospitalization, Other)
  Sender: FDA-Public Use
  Company Number: PHHY2012MX094737

PATIENT
  Age: 77 Year
  Sex: Female

DRUGS (2)
  1. ACLASTA [Suspect]
     Indication: OSTEOPOROSIS
     Dosage: 5 MG, PER 100ML ANNUALLY
     Route: 042
     Dates: start: 200909
  2. EXFORGE [Suspect]
     Indication: HYPERTENSION
     Dosage: 1 DF (160 MG VALS/ 5 MG AMLO), DAILY
     Dates: start: 2009

REACTIONS (11)
  - Gallbladder disorder [Not Recovered/Not Resolved]
  - Wound infection [Not Recovered/Not Resolved]
  - Diabetes mellitus [Not Recovered/Not Resolved]
  - Peritonitis [Unknown]
  - Back pain [Not Recovered/Not Resolved]
  - Blood disorder [Unknown]
  - Gastrointestinal disorder [Unknown]
  - Kyphosis [Not Recovered/Not Resolved]
  - Vein disorder [Unknown]
  - Malaise [Not Recovered/Not Resolved]
  - Hypertension [Not Recovered/Not Resolved]
